FAERS Safety Report 16174344 (Version 1)
Quarter: 2019Q2

REPORT INFORMATION
  Report Type: Spontaneous
  Country: FR (occurrence: FR)
  Receive Date: 20190409
  Receipt Date: 20190409
  Transmission Date: 20190711
  Serious: Yes (Hospitalization)
  Sender: FDA-Public Use
  Company Number: PHHY2019FR076370

PATIENT
  Age: 82 Year
  Sex: Female
  Weight: 51 kg

DRUGS (1)
  1. VANCOMYCIN SANDOZ [Suspect]
     Active Substance: VANCOMYCIN
     Indication: DEVICE RELATED INFECTION
     Dosage: 3 G, QD
     Route: 042
     Dates: start: 20190304, end: 20190315

REACTIONS (2)
  - Pyrexia [Recovered/Resolved]
  - Thrombocytopenia [Recovered/Resolved]

NARRATIVE: CASE EVENT DATE: 20190311
